FAERS Safety Report 20776422 (Version 6)
Quarter: 2022Q3

REPORT INFORMATION
  Report Type: Spontaneous
  Country: PR (occurrence: PR)
  Receive Date: 20220502
  Receipt Date: 20220902
  Transmission Date: 20221027
  Serious: Yes (Hospitalization, Other)
  Sender: FDA-Public Use
  Company Number: US-PFIZER INC-202200630362

PATIENT
  Age: 63 Year
  Sex: Male
  Weight: 82.54 kg

DRUGS (4)
  1. ACCUPRIL [Suspect]
     Active Substance: QUINAPRIL HYDROCHLORIDE
     Indication: Hypertension
     Dosage: 40 MG
     Dates: start: 2010
  2. ACCUPRIL [Suspect]
     Active Substance: QUINAPRIL HYDROCHLORIDE
     Dosage: 40 MG, 1X/DAY
     Dates: end: 2016
  3. ACCUPRIL [Suspect]
     Active Substance: QUINAPRIL HYDROCHLORIDE
     Dosage: 40 MG
     Dates: start: 2016, end: 202205
  4. TOPROL XL [Concomitant]
     Active Substance: METOPROLOL SUCCINATE
     Dosage: UNK
     Dates: start: 2010

REACTIONS (8)
  - Skin cancer [Not Recovered/Not Resolved]
  - Recalled product administered [Not Recovered/Not Resolved]
  - Prostate cancer [Unknown]
  - Follicle centre lymphoma diffuse small cell lymphoma [Unknown]
  - Follicular lymphoma [Unknown]
  - Lymphocytic infiltration [Unknown]
  - Lymphocyte count increased [Unknown]
  - Pseudolymphoma [Unknown]

NARRATIVE: CASE EVENT DATE: 20180101
